FAERS Safety Report 18475455 (Version 1)
Quarter: 2020Q4

REPORT INFORMATION
  Report Type: Spontaneous
  Country: CA (occurrence: CA)
  Receive Date: 20201107
  Receipt Date: 20201107
  Transmission Date: 20210114
  Serious: Yes (Disabling)
  Sender: FDA-Public Use
  Company Number: CA-DRREDDYS-USA/CAN/20/0128575

PATIENT
  Sex: Female

DRUGS (2)
  1. ZOLEDRONIC ACID INJECTION, 5 MG (BASE)/100 ML [Suspect]
     Active Substance: ZOLEDRONIC ACID
     Indication: OSTEOPOROSIS
     Dosage: 5 MG/100 ML
     Route: 051
     Dates: start: 20170413
  2. ZOLEDRONIC ACID INJECTION, 5 MG (BASE)/100 ML [Suspect]
     Active Substance: ZOLEDRONIC ACID
     Dosage: 5 MG/100 ML
     Route: 051
     Dates: start: 20191029

REACTIONS (1)
  - Wheelchair user [Unknown]
